FAERS Safety Report 16728432 (Version 1)
Quarter: 2019Q4

REPORT INFORMATION
  Report Type: Spontaneous
  Country: US (occurrence: US)
  Receive Date: 20190821
  Receipt Date: 20190821
  Transmission Date: 20200122
  Serious: No
  Sender: FDA-Public Use
  Company Number: None

PATIENT
  Sex: Female

DRUGS (11)
  1. QUERCETIN [Concomitant]
     Active Substance: QUERCETIN
  2. GLUTAMINE [Concomitant]
     Active Substance: GLUTAMINE
  3. ENBREL [Concomitant]
     Active Substance: ETANERCEPT
  4. FISH OIL [Concomitant]
     Active Substance: FISH OIL
  5. MELATONIN [Concomitant]
     Active Substance: MELATONIN
  6. SUMATRIPTAN. [Concomitant]
     Active Substance: SUMATRIPTAN
  7. ZINC. [Concomitant]
     Active Substance: ZINC
  8. ENBREL [Suspect]
     Active Substance: ETANERCEPT
     Indication: JUVENILE IDIOPATHIC ARTHRITIS
     Dosage: ?          OTHER FREQUENCY:EVERY WEEK;?
     Route: 058
  9. PRENATAL [Concomitant]
     Active Substance: VITAMINS
  10. PROBIOTIC [Concomitant]
     Active Substance: PROBIOTICS NOS
  11. ZYRTEC [Concomitant]
     Active Substance: CETIRIZINE HYDROCHLORIDE

REACTIONS (2)
  - Therapy cessation [None]
  - Maternal exposure during pregnancy [None]

NARRATIVE: CASE EVENT DATE: 20190820
